FAERS Safety Report 16944821 (Version 1)
Quarter: 2019Q4

REPORT INFORMATION
  Report Type: Spontaneous
  Country: US (occurrence: US)
  Receive Date: 20191022
  Receipt Date: 20191022
  Transmission Date: 20200122
  Serious: Yes (Other)
  Sender: FDA-Public Use
  Company Number: US-PFIZER INC-2019454123

PATIENT
  Age: 65 Year
  Sex: Male

DRUGS (3)
  1. VIAGRA [Suspect]
     Active Substance: SILDENAFIL CITRATE
     Indication: ERECTILE DYSFUNCTION
     Dosage: 50 MG, COUPLE TIMES A WEEK
     Dates: start: 20010329, end: 20010329
  2. CIALIS [Suspect]
     Active Substance: TADALAFIL
     Dosage: 5 MG, 1X/DAY
     Dates: start: 20110802, end: 20150910
  3. CIALIS [Suspect]
     Active Substance: TADALAFIL
     Indication: ERECTILE DYSFUNCTION
     Dosage: 20 MG, COUPLE TIMES A WEEK
     Dates: start: 20090314, end: 20120122

REACTIONS (1)
  - Malignant melanoma [Unknown]

NARRATIVE: CASE EVENT DATE: 20140228
